FAERS Safety Report 6465270-7 (Version None)
Quarter: 2009Q4

REPORT INFORMATION
  Report Type: 
  Country: None (occurrence: None)
  Receive Date: 20091201
  Receipt Date: 20090910
  Transmission Date: 20100525
  Serious: No
  Sender: FDA-Public Use
  Company Number: US-AMGEN-KDL261994

PATIENT
  Sex: Female
  Weight: 102.6 kg

DRUGS (5)
  1. ENBREL [Suspect]
     Indication: RHEUMATOID ARTHRITIS
     Route: 058
     Dates: start: 20070925, end: 20080408
  2. METHOTREXATE [Concomitant]
     Dates: start: 20000101
  3. SINGULAIR [Concomitant]
  4. VERAPAMIL [Concomitant]
  5. FOLIC ACID [Concomitant]

REACTIONS (6)
  - BONE FORMATION INCREASED [None]
  - EXOSTOSIS [None]
  - IMPAIRED HEALING [None]
  - NEUROMA [None]
  - POST PROCEDURAL INFECTION [None]
  - URTICARIA [None]
